FAERS Safety Report 16363044 (Version 2)
Quarter: 2019Q3

REPORT INFORMATION
  Report Type: Spontaneous
  Country: US (occurrence: US)
  Receive Date: 20190528
  Receipt Date: 20190923
  Transmission Date: 20191004
  Serious: Yes (Other)
  Sender: FDA-Public Use
  Company Number: US-PFIZER INC-2019226497

PATIENT
  Sex: Female

DRUGS (1)
  1. LORBRENA [Suspect]
     Active Substance: LORLATINIB
     Indication: NON-SMALL CELL LUNG CANCER
     Dosage: UNK

REACTIONS (7)
  - Pneumonia [Unknown]
  - Blood cholesterol increased [Unknown]
  - Arthralgia [Unknown]
  - Weight increased [Unknown]
  - Neoplasm progression [Unknown]
  - Lipids increased [Unknown]
  - Cognitive disorder [Unknown]
